FAERS Safety Report 4700445-6 (Version None)
Quarter: 2005Q2

REPORT INFORMATION
  Report Type: 
  Country: None (occurrence: None)
  Receive Date: 20050627
  Receipt Date: 20050615
  Transmission Date: 20051028
  Serious: Yes (Hospitalization, Other)
  Sender: FDA-Public Use
  Company Number: US-BRISTOL-MYERS SQUIBB COMPANY-13005137

PATIENT
  Sex: Male
  Weight: 100 kg

DRUGS (12)
  1. COUMADIN [Suspect]
     Indication: AORTIC VALVE REPLACEMENT
     Dosage: 7.5 MG DAILY FOR SEVERAL YRS; FOR LAST 1-1/2 WKS, 7.5 MG ALTERNATING WITH 10 MG DAILY
     Dates: start: 19950101
  2. PRILOSEC [Concomitant]
  3. LIPITOR [Concomitant]
  4. WELLBUTRIN [Concomitant]
  5. TOPAMAX [Concomitant]
  6. VICODIN [Concomitant]
  7. REGLAN [Concomitant]
  8. ULTRAM [Concomitant]
  9. SEPTRA DS [Concomitant]
  10. ZOLOFT [Concomitant]
     Dosage: TAKEN FOR YEARS, DISCONTINUED GRADUALLY ABOUT 2 WEEKS AGO
     Dates: end: 20050101
  11. LEXAPRO [Concomitant]
  12. TYLENOL [Concomitant]

REACTIONS (5)
  - DEHYDRATION [None]
  - FAILURE TO THRIVE [None]
  - INTERNATIONAL NORMALISED RATIO FLUCTUATION [None]
  - MALNUTRITION [None]
  - RENAL IMPAIRMENT [None]
